FAERS Safety Report 21749900 (Version 1)
Quarter: 2022Q4

REPORT INFORMATION
  Report Type: Spontaneous
  Country: US (occurrence: US)
  Receive Date: 20221219
  Receipt Date: 20221219
  Transmission Date: 20230113
  Serious: No
  Sender: FDA-Public Use
  Company Number: US-JNJFOC-20221220819

PATIENT
  Sex: Male
  Weight: 86.260 kg

DRUGS (5)
  1. TOPAMAX [Suspect]
     Active Substance: TOPIRAMATE
     Indication: Vestibular neuronitis
     Route: 048
     Dates: start: 20221012, end: 20221118
  2. ATOGEPANT [Suspect]
     Active Substance: ATOGEPANT
     Indication: Vestibular neuronitis
     Route: 065
  3. ALLOPURINOL [Concomitant]
     Active Substance: ALLOPURINOL
     Indication: Gout
  4. CRESTOR [Concomitant]
     Active Substance: ROSUVASTATIN CALCIUM
     Indication: Type V hyperlipidaemia
  5. COENZYME Q10 [Concomitant]
     Active Substance: DIETARY SUPPLEMENT\UBIDECARENONE

REACTIONS (4)
  - Blood glucose decreased [Unknown]
  - Dizziness [Unknown]
  - Paraesthesia [Unknown]
  - Off label use [Unknown]
